FAERS Safety Report 11523417 (Version 2)
Quarter: 2016Q2

REPORT INFORMATION
  Report Type: Spontaneous
  Country: US (occurrence: US)
  Receive Date: 20150918
  Receipt Date: 20160506
  Transmission Date: 20160815
  Serious: Yes (Death, Other)
  Sender: FDA-Public Use
  Company Number: US-TAKEDA-TPA2011A06259

PATIENT

DRUGS (8)
  1. SEPTRA DS [Concomitant]
     Active Substance: SULFAMETHOXAZOLE\TRIMETHOPRIM
     Dosage: UNK
     Dates: start: 20100113
  2. LIPITOR [Concomitant]
     Active Substance: ATORVASTATIN CALCIUM
     Dosage: 10 MG, UNK
  3. ACTOS [Suspect]
     Active Substance: PIOGLITAZONE HYDROCHLORIDE
     Indication: TYPE 2 DIABETES MELLITUS
     Dosage: 30 MG, UNK
     Route: 048
     Dates: start: 20090206, end: 201108
  4. NOVOLIN-TORONTO [Concomitant]
     Dosage: UNK
  5. FLOMAX [Concomitant]
     Active Substance: TAMSULOSIN HYDROCHLORIDE
     Dosage: UNK
  6. GLYBURIDE. [Concomitant]
     Active Substance: GLYBURIDE
     Dosage: UNK
  7. METFORMIN [Concomitant]
     Active Substance: METFORMIN HYDROCHLORIDE
     Dosage: 500 MG, UNK
     Dates: start: 200906, end: 201104
  8. DIABETA [Concomitant]
     Active Substance: GLYBURIDE
     Dosage: UNK
     Dates: start: 200805, end: 201110

REACTIONS (7)
  - Death [Fatal]
  - Cystitis [Unknown]
  - Dysuria [Unknown]
  - Urinary tract infection [Unknown]
  - Urinary incontinence [Unknown]
  - Bladder cancer [Unknown]
  - Micturition urgency [Unknown]

NARRATIVE: CASE EVENT DATE: 2007
